FAERS Safety Report 19500179 (Version 1)
Quarter: 2021Q3

REPORT INFORMATION
  Report Type: Spontaneous
  Country: US (occurrence: US)
  Receive Date: 20210706
  Receipt Date: 20210706
  Transmission Date: 20211014
  Serious: Yes (Hospitalization, Other)
  Sender: FDA-Public Use
  Company Number: US-009507513-2107USA000204

PATIENT
  Age: 74 Year
  Sex: Female

DRUGS (15)
  1. LEVOXYL [Concomitant]
     Active Substance: LEVOTHYROXINE SODIUM
     Dosage: 100 MCG (REPORTED AS 1)/DAY
  2. ZETIA [Concomitant]
     Active Substance: EZETIMIBE
     Dosage: UNK
  3. LOSARTAN POTASSIUM. [Concomitant]
     Active Substance: LOSARTAN POTASSIUM
     Dosage: UNK
  4. DULOXETINE. [Concomitant]
     Active Substance: DULOXETINE
     Dosage: STRENGTH: 60 (UNITS NOT PROVIDED)
  5. ATORVASTATIN [Concomitant]
     Active Substance: ATORVASTATIN
     Dosage: UNK
  6. OMEPRAZOLE. [Concomitant]
     Active Substance: OMEPRAZOLE
     Dosage: 40 MG AND 40 MG PRE?DINNER
  7. COLACE [Concomitant]
     Active Substance: DOCUSATE SODIUM
  8. KEYTRUDA [Suspect]
     Active Substance: PEMBROLIZUMAB
     Indication: OVARIAN CANCER RECURRENT
     Dosage: DOSE UNKNOWN BY REPORTER, EVERY 3 WEEKS
     Route: 042
     Dates: start: 20210412, end: 20210503
  9. KEYTRUDA [Suspect]
     Active Substance: PEMBROLIZUMAB
     Dosage: DOSE UNKNOWN BY REPORTER, EVERY 3 WEEKS
     Route: 042
     Dates: start: 20210628, end: 20210628
  10. FUROSEMIDE. [Concomitant]
     Active Substance: FUROSEMIDE
     Dosage: 2 (UNITS NOT PROVIDED) IN THE AM
  11. CONCERTA [Concomitant]
     Active Substance: METHYLPHENIDATE HYDROCHLORIDE
     Dosage: STRENGTH REPORTED AS 27 (UNITS NOT REPORTED)
  12. ASPIRINE [Concomitant]
     Active Substance: ASPIRIN
     Dosage: 81MG (REPORTED AS 1)/DAY
  13. DULOXETINE. [Concomitant]
     Active Substance: DULOXETINE
     Dosage: STRENGTH: 20 ^AMJ^
  14. INSPRA [Concomitant]
     Active Substance: EPLERENONE
     Dosage: DOSE REPORTED AS 1 (UNIT NOT PROVIDED)
  15. POTASSIUM [Concomitant]
     Active Substance: POTASSIUM

REACTIONS (3)
  - Fatigue [Unknown]
  - Malignant neoplasm progression [Unknown]
  - Pneumonitis [Recovering/Resolving]

NARRATIVE: CASE EVENT DATE: 2021
